FAERS Safety Report 5456675-1 (Version None)
Quarter: 2007Q3

REPORT INFORMATION
  Report Type: 
  Country: None (occurrence: None)
  Receive Date: 20070918
  Receipt Date: 20070906
  Transmission Date: 20080115
  Serious: Yes (Other)
  Sender: FDA-Public Use
  Company Number: US-ELI_LILLY_AND_COMPANY-US200707006914

PATIENT
  Age: 89 Year
  Sex: Female
  Weight: 48.888 kg

DRUGS (5)
  1. K-DUR 10 [Concomitant]
     Dosage: 20 MEQ, 2/D
     Dates: start: 20070302
  2. SYNTHROID [Concomitant]
     Dosage: 88 UG, DAILY (1/D)
     Dates: start: 20050506
  3. PLAVIX [Concomitant]
     Dosage: 75 MG, DAILY (1/D)
  4. LASIX [Concomitant]
     Dosage: 20 MG, DAILY (1/D)
  5. CYMBALTA [Suspect]
     Dosage: 30 MG, DAILY (1/D)
     Dates: start: 20070202, end: 20070221

REACTIONS (14)
  - ALANINE AMINOTRANSFERASE INCREASED [None]
  - ANOREXIA [None]
  - ASPARTATE AMINOTRANSFERASE INCREASED [None]
  - BLOOD ALKALINE PHOSPHATASE INCREASED [None]
  - BLOOD BILIRUBIN INCREASED [None]
  - BLOOD CREATININE INCREASED [None]
  - BLOOD UREA INCREASED [None]
  - BLOOD UREA NITROGEN/CREATININE RATIO INCREASED [None]
  - CONFUSIONAL STATE [None]
  - FATIGUE [None]
  - INFLUENZA LIKE ILLNESS [None]
  - NAUSEA [None]
  - SOMNOLENCE [None]
  - VOMITING [None]
